FAERS Safety Report 13246293 (Version 1)
Quarter: 2017Q1

REPORT INFORMATION
  Report Type: Spontaneous
  Country: FR (occurrence: FR)
  Receive Date: 20170217
  Receipt Date: 20170217
  Transmission Date: 20170428
  Serious: Yes (Hospitalization, Other)
  Sender: FDA-Public Use
  Company Number: FR-ROCHE-1894130

PATIENT
  Age: 73 Year
  Sex: Female

DRUGS (12)
  1. CORTANCYL [Interacting]
     Active Substance: PREDNISONE
     Indication: POLYMYALGIA RHEUMATICA
     Dosage: STARTED FOR A LONG TIME
     Route: 048
  2. PREVISCAN (FRANCE) [Concomitant]
     Active Substance: FLUINDIONE
     Dosage: DEPENDING ON INR
     Route: 065
  3. VAXIGRIP [Interacting]
     Active Substance: INFLUENZA VIRUS VACCINE
     Indication: IMMUNISATION
     Dosage: SINGLE INTAKE?ON 09/NOV/2016: VACCINATION BY VAXIGRIP (UNKNOWN BATCH).
     Route: 030
     Dates: start: 20161109, end: 20161109
  4. PANTOPRAZOLE [Concomitant]
     Active Substance: PANTOPRAZOLE SODIUM
     Route: 065
  5. PARACETAMOL [Concomitant]
     Active Substance: ACETAMINOPHEN
  6. METFORMINE [Concomitant]
     Active Substance: METFORMIN HYDROCHLORIDE
     Route: 065
  7. LASILIX [Concomitant]
     Active Substance: FUROSEMIDE
     Route: 065
  8. SOTALOL. [Concomitant]
     Active Substance: SOTALOL
     Route: 065
  9. ROACTEMRA [Suspect]
     Active Substance: TOCILIZUMAB
     Indication: POLYMYALGIA RHEUMATICA
     Dosage: 02/JAN/2017 CONTINUATION OF PLANNED ROACTEMRA.?DRIP SOLUTION, 20 MG/ML
     Route: 041
     Dates: start: 20160412
  10. TARDYFERON (FRANCE) [Concomitant]
     Active Substance: FERROUS SULFATE\GASTRIC MUCIN
  11. NOVORAPID [Concomitant]
     Active Substance: INSULIN ASPART
  12. BETAHISTINE [Concomitant]
     Active Substance: BETAHISTINE

REACTIONS (5)
  - Off label use [Unknown]
  - Influenza [Unknown]
  - Drug ineffective [Unknown]
  - Drug interaction [Unknown]
  - Product use issue [Unknown]
